FAERS Safety Report 23734260 (Version 1)
Quarter: 2024Q2

REPORT INFORMATION
  Report Type: Spontaneous
  Country: FR (occurrence: FR)
  Receive Date: 20240412
  Receipt Date: 20240412
  Transmission Date: 20240716
  Serious: Yes (Hospitalization)
  Sender: FDA-Public Use
  Company Number: None

PATIENT
  Age: 69 Year
  Sex: Male
  Weight: 80 kg

DRUGS (13)
  1. OLANZAPINE [Suspect]
     Active Substance: OLANZAPINE
     Indication: Behaviour disorder
     Dosage: DAILY DOSE: 10 MILLIGRAM
     Route: 048
     Dates: start: 20240308, end: 20240314
  2. OLANZAPINE [Suspect]
     Active Substance: OLANZAPINE
     Indication: Behaviour disorder
     Dosage: DAILY DOSE: 5 MILLIGRAM
     Route: 048
     Dates: start: 20240315, end: 20240319
  3. CEFTRIAXONE [Suspect]
     Active Substance: CEFTRIAXONE\CEFTRIAXONE SODIUM
     Indication: Pyrexia
     Dosage: DAILY DOSE: 1 GRAM
     Route: 042
     Dates: start: 20240312, end: 20240320
  4. METRONIDAZOLE [Suspect]
     Active Substance: METRONIDAZOLE
     Indication: Pyrexia
     Dosage: DAILY DOSE: 1500 MILLIGRAM
     Route: 048
     Dates: start: 20240313, end: 20240320
  5. TIAPRIDE HYDROCHLORIDE [Concomitant]
     Active Substance: TIAPRIDE HYDROCHLORIDE
  6. OXAZEPAM [Concomitant]
     Active Substance: OXAZEPAM
  7. ZOPICLONE [Concomitant]
     Active Substance: ZOPICLONE
  8. MIRTAZAPINE [Concomitant]
     Active Substance: MIRTAZAPINE
  9. CARBAMAZEPINE [Concomitant]
     Active Substance: CARBAMAZEPINE
  10. FENOFIBRATE [Concomitant]
     Active Substance: FENOFIBRATE
  11. INDAPAMIDE [Concomitant]
     Active Substance: INDAPAMIDE
  12. TAMSULOSIN [Concomitant]
     Active Substance: TAMSULOSIN
  13. CHOLECALCIFEROL [Concomitant]
     Active Substance: CHOLECALCIFEROL

REACTIONS (3)
  - Cholestasis [Recovering/Resolving]
  - Condition aggravated [Recovering/Resolving]
  - Liver disorder [Unknown]

NARRATIVE: CASE EVENT DATE: 20240314
